FAERS Safety Report 9147984 (Version 3)
Quarter: 2013Q2

REPORT INFORMATION
  Report Type: Spontaneous
  Country: GB (occurrence: GB)
  Receive Date: 20130307
  Receipt Date: 20130417
  Transmission Date: 20140414
  Serious: Yes (Other)
  Sender: FDA-Public Use
  Company Number: GB-MYLANLABS-2013S1004191

PATIENT
  Age: 19 Year
  Sex: Male

DRUGS (6)
  1. ESOMEPRAZOLE [Suspect]
     Indication: ABDOMINAL DISTENSION
     Route: 048
     Dates: start: 20130207, end: 20130208
  2. ESOMEPRAZOLE [Suspect]
     Indication: GASTROINTESTINAL DISORDER
     Route: 048
     Dates: start: 20130207, end: 20130208
  3. ESOMEPRAZOLE [Suspect]
     Indication: ABDOMINAL DISTENSION
  4. ESOMEPRAZOLE [Suspect]
     Indication: GASTROINTESTINAL DISORDER
  5. OMEPRAZOLE [Suspect]
     Indication: ABDOMINAL DISTENSION
     Route: 048
  6. OMEPRAZOLE [Suspect]
     Indication: ABDOMINAL DISTENSION
     Route: 048

REACTIONS (2)
  - Stevens-Johnson syndrome [Unknown]
  - Cytomegalovirus infection [Unknown]
